FAERS Safety Report 9531444 (Version 1)
Quarter: 2013Q3

REPORT INFORMATION
  Report Type: Spontaneous
  Country: US (occurrence: None)
  Receive Date: 20130916
  Receipt Date: 20130916
  Transmission Date: 20140515
  Serious: No
  Sender: FDA-Public Use
  Company Number: None

PATIENT
  Age: 48 Year
  Sex: Female
  Weight: 127.92 kg

DRUGS (1)
  1. MELOXICAM [Suspect]
     Dosage: 1 PILL ONCE DAILY TAKEN BY MOUTH
     Route: 048
     Dates: start: 20130908, end: 20130913

REACTIONS (5)
  - Anxiety [None]
  - Panic reaction [None]
  - Impaired work ability [None]
  - Feeling abnormal [None]
  - Disturbance in attention [None]
